FAERS Safety Report 17916236 (Version 1)
Quarter: 2020Q2

REPORT INFORMATION
  Report Type: Spontaneous
  Country: US (occurrence: US)
  Receive Date: 20200619
  Receipt Date: 20200619
  Transmission Date: 20200714
  Serious: No
  Sender: FDA-Public Use
  Company Number: US-ASTRAZENECA-2020SE73739

PATIENT
  Age: 65 Year
  Sex: Female
  Weight: 83.5 kg

DRUGS (6)
  1. NAPROXEN. [Concomitant]
     Active Substance: NAPROXEN
     Indication: ARTHRITIS
     Dosage: 500MG
     Route: 065
  2. ROSUVASTATIN. [Suspect]
     Active Substance: ROSUVASTATIN
     Indication: BLOOD CHOLESTEROL INCREASED
     Route: 048
  3. DEXILANT [Concomitant]
     Active Substance: DEXLANSOPRAZOLE
     Indication: GASTROOESOPHAGEAL REFLUX DISEASE
     Dosage: 60MG TAKEN ONCE DAILY
     Route: 065
     Dates: start: 2004
  4. ALPRAZOLAM. [Suspect]
     Active Substance: ALPRAZOLAM
     Dosage: INCREASED1.0MG UNKNOWN
     Route: 048
  5. ALPRAZOLAM. [Suspect]
     Active Substance: ALPRAZOLAM
     Dosage: UNKNOWN DOSE DESCRIBED AS LOW GRADE TABLET TAKEN0.5MG UNKNOWN
     Route: 048
     Dates: start: 1992
  6. METOPROLOL SUCCINATE. [Concomitant]
     Active Substance: METOPROLOL SUCCINATE
     Dosage: 25MG TAKEN ONCE DAILY
     Route: 065

REACTIONS (3)
  - Panic attack [Recovering/Resolving]
  - Product dose omission [Unknown]
  - Grief reaction [Recovering/Resolving]
